FAERS Safety Report 5960437-6 (Version None)
Quarter: 2008Q4

REPORT INFORMATION
  Report Type: 
  Country: None (occurrence: None)
  Receive Date: 20081120
  Receipt Date: 20081111
  Transmission Date: 20090506
  Serious: Yes (Hospitalization)
  Sender: FDA-Public Use
  Company Number: JP-B.I. PHARMACEUTICALS,INC./RIDGEFIELD-2008-BP-12441NB

PATIENT
  Sex: Male
  Weight: 55.8 kg

DRUGS (10)
  1. PRAMIPEXOLE DIHYDROCHLORIDE [Suspect]
     Indication: PARKINSON'S DISEASE
     Route: 048
     Dates: start: 20080613, end: 20080813
  2. CARBIDOPA + LEVODOPA [Concomitant]
     Indication: PARKINSON'S DISEASE
     Dosage: 600MG
     Route: 048
     Dates: start: 20080303
  3. SYMMETREL [Concomitant]
     Indication: PARKINSON'S DISEASE
     Dosage: 200MG
     Route: 048
     Dates: start: 20080107
  4. NAUZELIN [Concomitant]
     Indication: NAUSEA
     Dosage: 30MG
     Route: 048
  5. NORVASC [Concomitant]
     Indication: HYPERTENSION
     Dosage: 5MG
     Route: 048
  6. ASPIRIN [Concomitant]
     Indication: INFARCTION
     Dosage: 100MG
     Route: 048
  7. DIOVAN [Concomitant]
     Indication: HYPERTENSION
     Dosage: 80MG
     Route: 048
  8. CEROCRAL [Concomitant]
     Indication: DIZZINESS
     Dosage: 60MG
     Route: 048
  9. VESICARE [Concomitant]
     Indication: URINARY TRACT DISORDER
     Dosage: 5MG
     Route: 048
  10. URIEF [Concomitant]
     Indication: URINARY TRACT DISORDER
     Dosage: 8MG
     Route: 048

REACTIONS (5)
  - FALL [None]
  - HAEMORRHAGE [None]
  - PARKINSON'S DISEASE [None]
  - POSTURE ABNORMAL [None]
  - SPINAL COMPRESSION FRACTURE [None]
